FAERS Safety Report 22369310 (Version 1)
Quarter: 2023Q2

REPORT INFORMATION
  Report Type: Report from Study
  Country: US (occurrence: US)
  Receive Date: 20230526
  Receipt Date: 20230526
  Transmission Date: 20230721
  Serious: Yes (Other)
  Sender: FDA-Public Use
  Company Number: US-ABBVIE-5178135

PATIENT
  Age: 57 Year
  Sex: Male
  Weight: 113.39 kg

DRUGS (1)
  1. HUMIRA [Suspect]
     Active Substance: ADALIMUMAB
     Indication: Rheumatoid arthritis
     Route: 058
     Dates: start: 20221102

REACTIONS (3)
  - Cartilage injury [Recovered/Resolved]
  - Device issue [Unknown]
  - Post procedural inflammation [Recovered/Resolved]

NARRATIVE: CASE EVENT DATE: 20221201
